FAERS Safety Report 13456520 (Version 2)
Quarter: 2017Q2

REPORT INFORMATION
  Report Type: Spontaneous
  Country: TW (occurrence: TW)
  Receive Date: 20170418
  Receipt Date: 20170517
  Transmission Date: 20170830
  Serious: Yes (Death, Hospitalization)
  Sender: FDA-Public Use
  Company Number: TW-AMGEN-TWNSP2015027480

PATIENT
  Age: 80 Year
  Sex: Female

DRUGS (8)
  1. ENBREL [Suspect]
     Active Substance: ETANERCEPT
     Dosage: 50 MG, WEEKLY
     Route: 058
     Dates: start: 20160114, end: 2016
  2. ENBREL [Suspect]
     Active Substance: ETANERCEPT
     Indication: PRODUCT USED FOR UNKNOWN INDICATION
     Dosage: 25 MG, 2X/WEEK
     Route: 058
     Dates: start: 201209, end: 201410
  3. PREDNISOLONE. [Concomitant]
     Active Substance: PREDNISOLONE
     Indication: RHEUMATOID ARTHRITIS
     Dosage: UNK
  4. ENBREL [Suspect]
     Active Substance: ETANERCEPT
     Dosage: UNK
     Route: 065
     Dates: start: 2016
  5. ENBREL [Suspect]
     Active Substance: ETANERCEPT
     Dosage: 50 MG, ONCE WEEKLY
     Route: 058
     Dates: start: 201410, end: 201512
  6. MTX [Concomitant]
     Active Substance: METHOTREXATE SODIUM
     Dosage: 15 UNK, UNK
     Route: 048
  7. MTX [Concomitant]
     Active Substance: METHOTREXATE SODIUM
     Indication: RHEUMATOID ARTHRITIS
     Dosage: 15 MG, WEEKLY
     Route: 048
     Dates: end: 20150604
  8. MTX [Concomitant]
     Active Substance: METHOTREXATE SODIUM
     Dosage: 10 MG, QWK
     Route: 048
     Dates: start: 20150604

REACTIONS (30)
  - Hepatitis B DNA assay positive [Unknown]
  - Blood uric acid increased [Unknown]
  - Infection [Unknown]
  - Dyspnoea [Recovering/Resolving]
  - Cough [Recovering/Resolving]
  - Aspartate aminotransferase increased [Unknown]
  - Pancreatic cyst [Unknown]
  - Productive cough [Unknown]
  - Influenza [Unknown]
  - Coma [Not Recovered/Not Resolved]
  - Discomfort [Unknown]
  - C-reactive protein increased [Unknown]
  - Joint swelling [Recovered/Resolved]
  - Dysphonia [Unknown]
  - Blood creatine phosphokinase increased [Unknown]
  - Alanine aminotransferase increased [Unknown]
  - White blood cell count increased [Unknown]
  - Oedema peripheral [Unknown]
  - Arthralgia [Recovered/Resolved]
  - Red blood cell sedimentation rate increased [Unknown]
  - Hypoaesthesia [Unknown]
  - Cerebral thrombosis [Unknown]
  - Hypertension [Unknown]
  - Hypothyroidism [Unknown]
  - Viral upper respiratory tract infection [Recovering/Resolving]
  - Death [Fatal]
  - Hepatitis B surface antigen positive [Unknown]
  - Heart rate increased [Unknown]
  - Pleural effusion [Recovered/Resolved]
  - Blood creatinine increased [Unknown]

NARRATIVE: CASE EVENT DATE: 201503
